FAERS Safety Report 5804614-3 (Version None)
Quarter: 2008Q3

REPORT INFORMATION
  Report Type: 
  Country: None (occurrence: None)
  Receive Date: 20080707
  Receipt Date: 20080707
  Transmission Date: 20090109
  Serious: Yes (Hospitalization)
  Sender: FDA-Public Use
  Company Number: None

PATIENT
  Sex: Male
  Weight: 47.1 kg

DRUGS (2)
  1. CYTARABINE [Suspect]
     Dosage: 14070 MG
  2. ETOPOSIDE [Suspect]
     Dosage: 1050 MG

REACTIONS (6)
  - CAPILLARY LEAK SYNDROME [None]
  - DISSEMINATED INTRAVASCULAR COAGULATION [None]
  - HYPOTENSION [None]
  - MULTI-ORGAN FAILURE [None]
  - RESPIRATORY DISTRESS [None]
  - STREPTOCOCCAL SEPSIS [None]
